FAERS Safety Report 5131524-X (Version None)
Quarter: 2006Q4

REPORT INFORMATION
  Report Type: 
  Country: None (occurrence: None)
  Receive Date: 20061016
  Receipt Date: 20060919
  Transmission Date: 20070319
  Serious: Yes (Other)
  Sender: FDA-Public Use
  Company Number: 2006121959

PATIENT
  Age: 18 Year
  Sex: Female
  Weight: 80 kg

DRUGS (3)
  1. DOSTINEX [Suspect]
     Indication: PROLACTINOMA
     Dosage: (0.5 MG, 6 IN 1 WK); ORAL
     Route: 048
     Dates: end: 20030506
  2. PARLODEL [Concomitant]
  3. NORPROLAC (QUINAGOLIDE HYDROCHLORIDE) [Concomitant]

REACTIONS (3)
  - DRUG EXPOSURE DURING PREGNANCY [None]
  - NEOPLASM PROGRESSION [None]
  - PREGNANCY [None]
